FAERS Safety Report 6775012-3 (Version None)
Quarter: 2010Q2

REPORT INFORMATION
  Report Type: 
  Country: None (occurrence: None)
  Receive Date: 20100617
  Receipt Date: 20100614
  Transmission Date: 20101027
  Serious: Yes (Other)
  Sender: FDA-Public Use
  Company Number: A0865340A

PATIENT
  Age: 37 Year
  Sex: Male

DRUGS (1)
  1. AVANDIA [Suspect]
     Dosage: 4MG PER DAY
     Route: 048
     Dates: start: 20020701, end: 20070801

REACTIONS (3)
  - ATRIOVENTRICULAR BLOCK [None]
  - CATHETERISATION CARDIAC [None]
  - PULMONARY HYPERTENSION [None]
